FAERS Safety Report 25900857 (Version 1)
Quarter: 2025Q4

REPORT INFORMATION
  Report Type: Spontaneous
  Country: US (occurrence: None)
  Receive Date: 20251009
  Receipt Date: 20251009
  Transmission Date: 20260119
  Serious: Yes (Hospitalization, Disabling, Other)
  Sender: FDA-CTU
  Company Number: None

PATIENT
  Age: 48 Year
  Sex: Male
  Weight: 123.3 kg

DRUGS (2)
  1. CONTRAVE [Suspect]
     Active Substance: BUPROPION HYDROCHLORIDE\NALTREXONE HYDROCHLORIDE
     Indication: Weight control
     Dosage: OTHER QUANTITY : 1 TABLET(S);?FREQUENCY : TWICE A DAY;?
     Route: 048
     Dates: start: 20250803, end: 20250805
  2. WEGOVY [Suspect]
     Active Substance: SEMAGLUTIDE

REACTIONS (5)
  - Eye pain [None]
  - Fatigue [None]
  - Pain [None]
  - Visual impairment [None]
  - Therapy cessation [None]

NARRATIVE: CASE EVENT DATE: 20250803
